FAERS Safety Report 5652975-0 (Version None)
Quarter: 2008Q1

REPORT INFORMATION
  Report Type: 
  Country: None (occurrence: None)
  Receive Date: 20080131
  Receipt Date: 20071017
  Transmission Date: 20080703
  Serious: No
  Sender: FDA-Public Use
  Company Number: US200710004557

PATIENT
  Age: 70 Year
  Sex: Female
  Weight: 118.4 kg

DRUGS (5)
  1. BYETTA [Suspect]
     Indication: TYPE 2 DIABETES MELLITUS
     Dosage: 5 UG, 2/D, SUBCUTANEOUS
     Route: 058
     Dates: start: 20071016
  2. METFORMIN HCL [Concomitant]
  3. LISINOPRIL HYDROCHLOROTHIAZID (HYDROCHLOROTHIAZIDE, LISINOPRIL) [Concomitant]
  4. LOVASTATIN [Concomitant]
  5. ACTOS /USA/ (PIOGLITAZONE HYDROCHLORIDE) [Concomitant]

REACTIONS (4)
  - ABDOMINAL PAIN UPPER [None]
  - ERUCTATION [None]
  - HOT FLUSH [None]
  - SENSATION OF PRESSURE [None]
